FAERS Safety Report 17338041 (Version 2)
Quarter: 2020Q1

REPORT INFORMATION
  Report Type: Spontaneous
  Country: US (occurrence: US)
  Receive Date: 20200129
  Receipt Date: 20200205
  Transmission Date: 20200409
  Serious: Yes (Life-Threatening, Hospitalization)
  Sender: FDA-Public Use
  Company Number: US-TEVA-2020-US-1175465

PATIENT
  Age: 50 Year
  Sex: Male

DRUGS (3)
  1. IMMUNEGLOBULIN [Concomitant]
     Indication: IMMUNODEFICIENCY COMMON VARIABLE
     Route: 042
  2. LIPOSOMAL AMPHOTERICIN B [Suspect]
     Active Substance: AMPHOTERICIN B
     Indication: BLASTOMYCOSIS
     Route: 065
  3. EPOPROSTENOL. [Suspect]
     Active Substance: EPOPROSTENOL
     Indication: RESPIRATORY FAILURE
     Route: 055

REACTIONS (1)
  - Drug ineffective [Unknown]
